FAERS Safety Report 4532962-6 (Version None)
Quarter: 2004Q4

REPORT INFORMATION
  Report Type: 
  Country: None (occurrence: None)
  Receive Date: 20041220
  Receipt Date: 20041220
  Transmission Date: 20050328
  Serious: Yes (Death, Hospitalization)
  Sender: FDA-Public Use
  Company Number: None

PATIENT
  Sex: Male
  Weight: 147 kg

DRUGS (5)
  1. VIOXX [Suspect]
     Indication: ARTHRITIS
  2. VIAGRA [Suspect]
     Indication: ERECTILE DYSFUNCTION
  3. COUMADIN [Concomitant]
  4. FIORICET [Concomitant]
  5. NORVASC [Concomitant]

REACTIONS (2)
  - CARDIAC FAILURE [None]
  - MYOCARDIAL INFARCTION [None]
